FAERS Safety Report 19614717 (Version 1)
Quarter: 2021Q3

REPORT INFORMATION
  Report Type: Spontaneous
  Country: US (occurrence: US)
  Receive Date: 20210727
  Receipt Date: 20210727
  Transmission Date: 20211014
  Serious: Yes (Hospitalization)
  Sender: FDA-Public Use
  Company Number: US-MYLANLABS-2021M1045632

PATIENT
  Age: 51 Year
  Sex: Male

DRUGS (3)
  1. OMEPRAZOLE. [Interacting]
     Active Substance: OMEPRAZOLE
     Indication: PRODUCT USED FOR UNKNOWN INDICATION
     Dosage: UNK
     Route: 065
  2. PHENYTOIN. [Suspect]
     Active Substance: PHENYTOIN
     Indication: SEIZURE
     Dosage: 300 MILLIGRAM,NIGHTLY
     Route: 048
  3. PHENYTOIN. [Interacting]
     Active Substance: PHENYTOIN
     Dosage: 200 MILLIGRAM,NIGHTLY FOR NEXT 7 MONTHS
     Route: 048

REACTIONS (6)
  - Dizziness [Unknown]
  - Fall [Unknown]
  - Labelled drug-drug interaction issue [Unknown]
  - Toxicity to various agents [Unknown]
  - Ataxia [Unknown]
  - Mental status changes [Unknown]
